FAERS Safety Report 8893906 (Version 3)
Quarter: 2013Q4

REPORT INFORMATION
  Report Type: Spontaneous
  Country: JP (occurrence: JP)
  Receive Date: 20121108
  Receipt Date: 20131230
  Transmission Date: 20140711
  Serious: Yes (Hospitalization)
  Sender: FDA-Public Use
  Company Number: JP-BAYER-201013091BYL

PATIENT
  Age: 62 Year
  Sex: Male
  Weight: 61 kg

DRUGS (14)
  1. NEXAVAR [Suspect]
     Indication: HEPATOCELLULAR CARCINOMA
     Dosage: 200 MG, QD
     Route: 048
     Dates: start: 20100519, end: 20100613
  2. NEXAVAR [Suspect]
     Indication: HEPATOCELLULAR CARCINOMA
     Dosage: 200 MG, BID
     Route: 048
     Dates: start: 20100614, end: 20100619
  3. NEXAVAR [Suspect]
     Indication: HEPATOCELLULAR CARCINOMA
     Dosage: 200 MG, QD
     Route: 048
     Dates: start: 20100619, end: 20100619
  4. NEXAVAR [Suspect]
     Indication: HEPATOCELLULAR CARCINOMA
     Dosage: 200 MG, QD
     Route: 048
     Dates: start: 20100708, end: 20100719
  5. NEXAVAR [Suspect]
     Indication: HEPATOCELLULAR CARCINOMA
     Dosage: DAILY DOSE 400MG
     Route: 048
     Dates: start: 201007, end: 20100728
  6. NEXAVAR [Suspect]
     Indication: HEPATOCELLULAR CARCINOMA
     Dosage: 800 MG DAILY
     Route: 048
     Dates: start: 2010
  7. VASOLAN [Concomitant]
     Indication: ATRIAL FIBRILLATION
     Dosage: 160 MG (DAILY DOSE), , ORAL
     Route: 048
     Dates: start: 20100311
  8. BAYASPIRIN [Concomitant]
     Indication: CEREBRAL INFARCTION
     Dosage: 100 MG (DAILY DOSE), , ORAL
     Route: 048
     Dates: start: 20100311
  9. MUCOSTA [Concomitant]
     Indication: PROPHYLAXIS AGAINST GASTROINTESTINAL ULCER
     Dosage: 300 MG (DAILY DOSE), , ORAL
     Route: 048
     Dates: start: 20100311
  10. TAKEPRON [Concomitant]
     Indication: PROPHYLAXIS AGAINST GASTROINTESTINAL ULCER
     Dosage: 15 MG (DAILY DOSE), , ORAL
     Route: 048
     Dates: start: 20100311
  11. VITAMEDIN [Concomitant]
     Indication: VITAMIN SUPPLEMENTATION
     Dosage: 50 MG (DAILY DOSE), , ORAL
     Route: 048
     Dates: start: 20100311
  12. OPALMON [Concomitant]
     Indication: PROPHYLAXIS
     Dosage: 15 ?G (DAILY DOSE), , ORAL
     Route: 048
     Dates: start: 20100311
  13. WARFARIN [Concomitant]
     Indication: ATRIAL FIBRILLATION
     Dosage: 2 MG (DAILY DOSE), , ORAL
     Route: 048
     Dates: start: 20100311
  14. OLMETEC [Concomitant]
     Indication: HYPERTENSION
     Dosage: 10 MG (DAILY DOSE), , ORAL
     Route: 048
     Dates: start: 20100311

REACTIONS (9)
  - Aspartate aminotransferase increased [Recovered/Resolved]
  - Alanine aminotransferase increased [Recovered/Resolved]
  - Lower gastrointestinal haemorrhage [Recovered/Resolved]
  - Blood bilirubin increased [Recovered/Resolved]
  - Melaena [None]
  - Haematochezia [Recovered/Resolved]
  - Large intestinal ulcer [Recovered/Resolved]
  - Abdominal pain [Recovered/Resolved]
  - Decreased appetite [Recovered/Resolved]
